FAERS Safety Report 5501513-1 (Version None)
Quarter: 2007Q4

REPORT INFORMATION
  Report Type: 
  Country: None (occurrence: None)
  Receive Date: 20071030
  Receipt Date: 20071022
  Transmission Date: 20080405
  Serious: Yes (Hospitalization, Other)
  Sender: FDA-Public Use
  Company Number: PHEH2007US13909

PATIENT
  Age: 62 Year
  Sex: Female
  Weight: 63.492 kg

DRUGS (8)
  1. VIVELLE [Suspect]
     Dosage: 0.05 MG, TIW
     Route: 061
  2. VIVELLE-DOT [Suspect]
  3. PREMPRO [Suspect]
  4. FOSAMAX [Concomitant]
  5. LEVBID [Concomitant]
  6. DITROPAN [Concomitant]
  7. XANAX [Concomitant]
     Dosage: UNK, PRN
  8. ESTRADERM [Suspect]
     Indication: MENOPAUSAL SYMPTOMS
     Dosage: 0.05 MG, TIW
     Route: 061
     Dates: start: 19920916

REACTIONS (25)
  - ABDOMINAL DISTENSION [None]
  - ABDOMINAL PAIN [None]
  - AGRANULOCYTOSIS [None]
  - ANXIETY DISORDER [None]
  - ASCITES [None]
  - CARBOHYDRATE ANTIGEN 125 INCREASED [None]
  - CARDIAC FAILURE CONGESTIVE [None]
  - DYSPNOEA [None]
  - GASTROOESOPHAGEAL REFLUX DISEASE [None]
  - IRRITABLE BOWEL SYNDROME [None]
  - LAPAROSCOPY [None]
  - MITRAL VALVE PROLAPSE [None]
  - NEUTROPENIA [None]
  - OMENTUM NEOPLASM [None]
  - ORTHOSTATIC HYPOTENSION [None]
  - OSTEOARTHRITIS [None]
  - OSTEOPENIA [None]
  - OVARIAN CANCER METASTATIC [None]
  - OVARIAN ENLARGEMENT [None]
  - PERITONEAL NEOPLASM [None]
  - PLEURAL EFFUSION [None]
  - PRESYNCOPE [None]
  - PULMONARY OEDEMA [None]
  - RESPIRATORY FAILURE [None]
  - SURGERY [None]
